FAERS Safety Report 9728290 (Version 1)
Quarter: 2013Q4

REPORT INFORMATION
  Report Type: Spontaneous
  Country: US (occurrence: None)
  Receive Date: 20131203
  Receipt Date: 20131203
  Transmission Date: 20140711
  Serious: No
  Sender: FDA-Public Use
  Company Number: None

PATIENT
  Age: 78 Year
  Sex: Male
  Weight: 90.72 kg

DRUGS (6)
  1. WARFARIN [Suspect]
     Indication: ATRIAL FIBRILLATION
     Dosage: 2 MG ----}5 MG?10 MG ----} 6 MG
     Route: 048
     Dates: start: 20130604
  2. LOSARTAN [Concomitant]
  3. LANTUS SOLOSTAR [Concomitant]
  4. FERROUS SULFATE [Concomitant]
  5. PRAVASTATIN [Concomitant]
  6. HUMALOG KWIK PEN [Concomitant]

REACTIONS (3)
  - Dyspnoea [None]
  - Fatigue [None]
  - Anaemia [None]
